FAERS Safety Report 8477130-0 (Version None)
Quarter: 2012Q2

REPORT INFORMATION
  Report Type: 
  Country: None (occurrence: None)
  Receive Date: 20120629
  Receipt Date: 20120625
  Transmission Date: 20120825
  Serious: No
  Sender: FDA-Public Use
  Company Number: US-PFIZER INC-2012152289

PATIENT
  Sex: Male
  Weight: 113 kg

DRUGS (4)
  1. LEXAPRO [Concomitant]
     Indication: DEPRESSION
     Dosage: 25 MG,DAILY
  2. LUNESTA [Concomitant]
     Indication: SLEEP DISORDER
     Dosage: 3 MG,DAILY
  3. LYRICA [Suspect]
     Indication: ANXIETY
     Dosage: 75 MG, 2X/DAY
     Route: 048
     Dates: start: 20120620
  4. LYRICA [Suspect]
     Indication: DEPRESSION

REACTIONS (4)
  - ELEVATED MOOD [None]
  - OFF LABEL USE [None]
  - PERSONALITY CHANGE [None]
  - THERAPEUTIC RESPONSE UNEXPECTED [None]
